FAERS Safety Report 25507107 (Version 1)
Quarter: 2025Q3

REPORT INFORMATION
  Report Type: Spontaneous
  Country: GB (occurrence: GB)
  Receive Date: 20250702
  Receipt Date: 20250702
  Transmission Date: 20251021
  Serious: Yes (Other)
  Sender: ORGANON
  Company Number: None

PATIENT
  Age: 67 Year
  Sex: Female
  Weight: 91 kg

DRUGS (5)
  1. EZETIMIBE [Suspect]
     Active Substance: EZETIMIBE
  2. BEMPEDOIC ACID\EZETIMIBE [Suspect]
     Active Substance: BEMPEDOIC ACID\EZETIMIBE
     Indication: Ill-defined disorder
     Dosage: TAKE ONE DAILY
     Dates: start: 20250519
  3. NAPROXEN [Concomitant]
     Active Substance: NAPROXEN
     Indication: Ill-defined disorder
     Dates: start: 20250604
  4. OMEPRAZOLE [Concomitant]
     Active Substance: OMEPRAZOLE
     Indication: Ill-defined disorder
     Dosage: TAKE ONE DAILY WHEN TAKING NAPROXEN
     Dates: start: 20250604
  5. EZETIMIBE [Concomitant]
     Active Substance: EZETIMIBE
     Indication: Ill-defined disorder
     Dosage: TAKE ONE DAILY
     Dates: start: 20240904, end: 20250519

REACTIONS (1)
  - Dyspnoea [Unknown]
